FAERS Safety Report 23120227 (Version 1)
Quarter: 2023Q4

REPORT INFORMATION
  Report Type: Other
  Country: ES (occurrence: ES)
  Receive Date: 20231029
  Receipt Date: 20231029
  Transmission Date: 20240110
  Serious: Yes (Hospitalization, Disabling, Other)
  Sender: FDA-Public Use
  Company Number: ES-DEXPHARM-20232619

PATIENT
  Age: 77 Year
  Sex: Female

DRUGS (5)
  1. LISINOPRIL [Concomitant]
     Active Substance: LISINOPRIL
     Dosage: NA
  2. SIMVASTATIN [Concomitant]
     Active Substance: SIMVASTATIN
     Dosage: NA
  3. REPAGLINIDE [Concomitant]
     Active Substance: REPAGLINIDE
     Dosage: NA
  4. OMEPRAZOLE [Interacting]
     Active Substance: OMEPRAZOLE
     Dosage: NA
  5. HYDROCHLOROTHIAZIDE [Interacting]
     Active Substance: HYDROCHLOROTHIAZIDE
     Dosage: NA

REACTIONS (4)
  - Hypomagnesaemia [Recovering/Resolving]
  - Cerebellar syndrome [Recovering/Resolving]
  - Hypocalcaemia [Recovering/Resolving]
  - Drug interaction [Unknown]
